FAERS Safety Report 16757055 (Version 1)
Quarter: 2019Q3

REPORT INFORMATION
  Report Type: Report from Study
  Country: CA (occurrence: CA)
  Receive Date: 20190829
  Receipt Date: 20190829
  Transmission Date: 20191005
  Serious: Yes (Hospitalization, Other)
  Sender: FDA-Public Use
  Company Number: CA-TEVA-2019-CA-1039664

PATIENT
  Age: 50 Year
  Sex: Female

DRUGS (6)
  1. REVOLADE [Suspect]
     Active Substance: ELTROMBOPAG
     Dosage: 50 MILLIGRAM DAILY;
     Route: 048
  2. REVOLADE [Suspect]
     Active Substance: ELTROMBOPAG
     Dosage: 75 MILLIGRAM DAILY;
     Route: 065
  3. DEXAMETHASONE. [Suspect]
     Active Substance: DEXAMETHASONE
     Indication: PRODUCT USED FOR UNKNOWN INDICATION
     Route: 065
  4. ROMIPLOSTIM [Concomitant]
     Active Substance: ROMIPLOSTIM
     Indication: PRODUCT USED FOR UNKNOWN INDICATION
     Route: 048
  5. REVOLADE [Suspect]
     Active Substance: ELTROMBOPAG
     Indication: IMMUNE THROMBOCYTOPENIC PURPURA
     Dosage: 25 MILLIGRAM DAILY;
     Route: 048
  6. REVOLADE [Suspect]
     Active Substance: ELTROMBOPAG
     Route: 048

REACTIONS (5)
  - Condition aggravated [Recovering/Resolving]
  - Red blood cell count decreased [Recovering/Resolving]
  - Drug ineffective [Recovering/Resolving]
  - Haemorrhage [Recovering/Resolving]
  - Immune thrombocytopenic purpura [Recovering/Resolving]
